FAERS Safety Report 25554096 (Version 1)
Quarter: 2025Q3

REPORT INFORMATION
  Report Type: Spontaneous
  Country: US (occurrence: US)
  Receive Date: 20250715
  Receipt Date: 20250715
  Transmission Date: 20251020
  Serious: Yes (Hospitalization, Other)
  Sender: ALEXION PHARMACEUTICALS
  Company Number: US-ASTRAZENECA-202507USA006311US

PATIENT
  Age: 37 Year
  Sex: Female

DRUGS (1)
  1. SOLIRIS [Suspect]
     Active Substance: ECULIZUMAB
     Indication: Atypical haemolytic uraemic syndrome
     Route: 065

REACTIONS (9)
  - Hepatic haemorrhage [Unknown]
  - Fatigue [Unknown]
  - Nausea [Unknown]
  - Pain [Not Recovered/Not Resolved]
  - Malaise [Unknown]
  - Complication associated with device [Unknown]
  - Fall [Unknown]
  - Anaemia [Unknown]
  - Asthenia [Unknown]
